FAERS Safety Report 22116883 (Version 3)
Quarter: 2023Q2

REPORT INFORMATION
  Report Type: Report from Study
  Country: US (occurrence: None)
  Receive Date: 20230320
  Receipt Date: 20230424
  Transmission Date: 20230722
  Serious: Yes (Hospitalization, Disabling)
  Sender: FDA-Public Use
  Company Number: US-ROCHE-3310784

PATIENT
  Age: 78 Year
  Sex: Male
  Weight: 79.4 kg

DRUGS (2)
  1. ATEZOLIZUMAB [Suspect]
     Active Substance: ATEZOLIZUMAB
     Indication: Hormone-refractory prostate cancer
     Dosage: ON 05/JAN/2023 MOST RECENT DOSE OF ATEZOLIZUMAB WAS ADMINISTERED?SUPPLIED AS 1200 MG/20 ML VIALS
     Route: 041
  2. CABOZANTINIB [Suspect]
     Active Substance: CABOZANTINIB
     Indication: Hormone-refractory prostate cancer
     Dosage: SUPPLIED AS 20-MG TABLETS; ADMINISTERED ORALLY DAILY AT 40MG, LAST DOSE OF CABOZANTINIB WAS ADMINIST
     Route: 048

REACTIONS (1)
  - Femur fracture [Recovered/Resolved]

NARRATIVE: CASE EVENT DATE: 20230311
